FAERS Safety Report 19661405 (Version 1)
Quarter: 2021Q3

REPORT INFORMATION
  Report Type: Spontaneous
  Country: GB (occurrence: GB)
  Receive Date: 20210805
  Receipt Date: 20210805
  Transmission Date: 20211014
  Serious: Yes (Other)
  Sender: FDA-Public Use
  Company Number: GB-ORGANON-O2108GBR000035

PATIENT
  Age: 95 Year

DRUGS (1)
  1. SINEMET [Suspect]
     Active Substance: CARBIDOPA\LEVODOPA
     Indication: PARKINSON^S DISEASE
     Dosage: 1 TABLET 5 TIMES A DAY; DOSE IS GIVEN EVERY 4 HOURS
     Route: 048

REACTIONS (1)
  - Parkinson^s disease [Unknown]
